FAERS Safety Report 16121263 (Version 1)
Quarter: 2019Q1

REPORT INFORMATION
  Report Type: Spontaneous
  Country: US (occurrence: US)
  Receive Date: 20190327
  Receipt Date: 20190327
  Transmission Date: 20190418
  Serious: Yes (Hospitalization, Other)
  Sender: FDA-Public Use
  Company Number: US-HIKMA PHARMACEUTICALS USA INC.-US-H14001-19-01709

PATIENT
  Age: 35 Year
  Sex: Female

DRUGS (6)
  1. LEUCOVORIN CALCIUM. [Interacting]
     Active Substance: LEUCOVORIN CALCIUM
     Route: 065
     Dates: start: 201703
  2. LEUCOVORIN CALCIUM. [Suspect]
     Active Substance: LEUCOVORIN CALCIUM
     Indication: CEREBRAL TOXOPLASMOSIS
     Route: 065
     Dates: start: 201703, end: 201703
  3. ATOVAQUONE. [Concomitant]
     Active Substance: ATOVAQUONE
     Indication: ANTIFUNGAL PROPHYLAXIS
     Route: 048
     Dates: start: 201610, end: 201703
  4. ELVITEGRAVIR 150 MG/COBICISTAT 150 MG/EMTRICITABINE 200 MG/TENOFOVIR A [Interacting]
     Active Substance: ELVITEGRAVIR
     Indication: HIV INFECTION
     Dosage: WITH BREAKFAST EVERY MORNING
     Route: 048
     Dates: start: 201704, end: 201708
  5. PYRIMETHAMINE [Concomitant]
     Active Substance: PYRIMETHAMINE
     Indication: CEREBRAL TOXOPLASMOSIS
     Route: 048
     Dates: start: 201703
  6. ATOVAQUONE. [Concomitant]
     Active Substance: ATOVAQUONE
     Indication: ANTIFUNGAL PROPHYLAXIS
     Route: 048
     Dates: start: 201703

REACTIONS (4)
  - Gene mutation [Unknown]
  - Blood HIV RNA increased [Recovered/Resolved]
  - Drug interaction [Unknown]
  - Off label use [Unknown]

NARRATIVE: CASE EVENT DATE: 2017
